FAERS Safety Report 22149972 (Version 1)
Quarter: 2023Q1

REPORT INFORMATION
  Report Type: Report from Study
  Country: GB (occurrence: GB)
  Receive Date: 20230329
  Receipt Date: 20230329
  Transmission Date: 20230417
  Serious: Yes (Other)
  Sender: FDA-Public Use
  Company Number: GB-JNJFOC-20230348654

PATIENT
  Sex: Male

DRUGS (2)
  1. STELARA [Suspect]
     Active Substance: USTEKINUMAB
     Indication: Crohn^s disease
     Route: 058
     Dates: start: 20210706
  2. STELARA [Suspect]
     Active Substance: USTEKINUMAB

REACTIONS (7)
  - Pneumothorax [Unknown]
  - Pulmonary thrombosis [Unknown]
  - Spinal fracture [Unknown]
  - Chemotherapy [Unknown]
  - Liver disorder [Unknown]
  - Pain [Unknown]
  - Product dose omission issue [Unknown]
